FAERS Safety Report 16859626 (Version 2)
Quarter: 2019Q4

REPORT INFORMATION
  Report Type: Spontaneous
  Country: US (occurrence: US)
  Receive Date: 20190927
  Receipt Date: 20191011
  Transmission Date: 20200122
  Serious: No
  Sender: FDA-Public Use
  Company Number: US-BEH-2019107145

PATIENT
  Age: 42 Year
  Sex: Female

DRUGS (11)
  1. HIZENTRA [Suspect]
     Active Substance: HUMAN IMMUNOGLOBULIN G
     Indication: IMMUNODEFICIENCY
     Dosage: 8 GRAM / 40 ML, QW
     Route: 058
     Dates: start: 20190816
  2. FISH OIL [Concomitant]
     Active Substance: FISH OIL
  3. PREDNISONE. [Concomitant]
     Active Substance: PREDNISONE
  4. HIZENTRA [Suspect]
     Active Substance: HUMAN IMMUNOGLOBULIN G
     Dosage: 8 GRAM / 40 ML, TOT
     Route: 058
  5. MELOXICAM. [Concomitant]
     Active Substance: MELOXICAM
  6. PHENTERMINE. [Concomitant]
     Active Substance: PHENTERMINE
  7. LIDOCAINE PRILOCAINE BIOGARAN [Concomitant]
  8. BACLOFEN. [Concomitant]
     Active Substance: BACLOFEN
  9. HIZENTRA [Suspect]
     Active Substance: HUMAN IMMUNOGLOBULIN G
     Indication: IMMUNODEFICIENCY COMMON VARIABLE
     Dosage: 8 GRAM / 40 ML, TOT
     Route: 058
  10. GABAPENTIN. [Concomitant]
     Active Substance: GABAPENTIN
  11. PRAVASTATIN. [Concomitant]
     Active Substance: PRAVASTATIN

REACTIONS (2)
  - Infusion site pain [Not Recovered/Not Resolved]
  - Infusion site irritation [Not Recovered/Not Resolved]
